FAERS Safety Report 7760668-9 (Version None)
Quarter: 2011Q3

REPORT INFORMATION
  Report Type: 
  Country: None (occurrence: None)
  Receive Date: 20110919
  Receipt Date: 20110909
  Transmission Date: 20111222
  Serious: Yes (Hospitalization)
  Sender: FDA-Public Use
  Company Number: US-ASTRAZENECA-2010SE56950

PATIENT
  Age: 79 Year
  Sex: Female

DRUGS (3)
  1. RHINOCORT [Suspect]
     Route: 045
  2. SYMBICORT [Suspect]
     Dosage: 180/4.5 MCG ONE PUFF BID
     Route: 055
  3. NEXIUM [Suspect]
     Indication: GASTROOESOPHAGEAL REFLUX DISEASE
     Route: 048
     Dates: start: 20070101

REACTIONS (6)
  - DYSPHONIA [None]
  - DIARRHOEA [None]
  - DRUG INEFFECTIVE [None]
  - DYSKINESIA [None]
  - DYSPNOEA [None]
  - OROPHARYNGEAL PAIN [None]
